FAERS Safety Report 9420052 (Version 2)
Quarter: 2013Q3

REPORT INFORMATION
  Report Type: Spontaneous
  Country: IT (occurrence: IT)
  Receive Date: 20130725
  Receipt Date: 20130830
  Transmission Date: 20140515
  Serious: Yes (Hospitalization)
  Sender: FDA-Public Use
  Company Number: IT-SANOFI-AVENTIS-2013SA072409

PATIENT
  Age: 87 Year
  Sex: Female

DRUGS (10)
  1. LASIX [Suspect]
     Indication: PRODUCT USED FOR UNKNOWN INDICATION
     Route: 048
     Dates: start: 20130301
  2. ZAROXOLYN [Suspect]
     Indication: CARDIAC FAILURE
     Dosage: DOSE- 1 POSOLOGICAL UNIT
     Route: 048
     Dates: start: 20130217
  3. ZAROXOLYN [Suspect]
     Indication: CARDIAC FAILURE
     Route: 048
     Dates: end: 20120606
  4. ZAROXOLYN [Suspect]
     Indication: CARDIAC FAILURE
     Route: 048
     Dates: start: 20130301, end: 20130410
  5. KANRENOL [Suspect]
     Indication: PRODUCT USED FOR UNKNOWN INDICATION
     Dosage: DOSE- 1 POSOLOGICAL UNIT
     Route: 048
     Dates: start: 20130301, end: 20130410
  6. CLOPIDOGREL [Concomitant]
  7. SIMVASTATIN [Concomitant]
  8. ALLOPURINOL [Concomitant]
  9. CALCITRIOL [Concomitant]
  10. REOMAX [Concomitant]
     Dosage: STRENGTH: 50MG
     Route: 048

REACTIONS (2)
  - Renal failure acute [Unknown]
  - Hyponatraemia [Unknown]
